FAERS Safety Report 5338148-X (Version None)
Quarter: 2007Q2

REPORT INFORMATION
  Report Type: 
  Country: None (occurrence: None)
  Receive Date: 20070530
  Receipt Date: 20070521
  Transmission Date: 20071010
  Serious: Yes (Other)
  Sender: FDA-Public Use
  Company Number: PHEH2007US07151

PATIENT
  Age: 64 Year
  Sex: Male

DRUGS (5)
  1. TEKTURNA [Suspect]
     Indication: HYPERTENSION
     Dosage: 300 MG, QD
     Route: 048
     Dates: end: 20070504
  2. TEKTURNA [Suspect]
     Route: 048
     Dates: start: 20070510
  3. INSULIN [Concomitant]
     Dosage: 35 U, UNK
     Route: 058
  4. DIOVAN [Concomitant]
     Dosage: 320/25 MG
     Route: 048
  5. CADUET [Concomitant]
     Dosage: 10/40,UNK
     Route: 048

REACTIONS (8)
  - CONSTIPATION [None]
  - INCISIONAL DRAINAGE [None]
  - MALAISE [None]
  - NASAL CONGESTION [None]
  - PYREXIA [None]
  - RECTAL HAEMORRHAGE [None]
  - SKIN TIGHTNESS [None]
  - SUBCUTANEOUS ABSCESS [None]
